FAERS Safety Report 15068019 (Version 1)
Quarter: 2018Q2

REPORT INFORMATION
  Report Type: Spontaneous
  Country: CH (occurrence: CH)
  Receive Date: 20180626
  Receipt Date: 20180626
  Transmission Date: 20180711
  Serious: Yes (Life-Threatening, Other)
  Sender: FDA-Public Use
  Company Number: CH-SA-2018SA158915

PATIENT
  Age: 28 Year
  Sex: Female

DRUGS (8)
  1. RIFAMPICIN [Suspect]
     Active Substance: RIFAMPIN
     Indication: LYMPH NODE TUBERCULOSIS
     Dosage: UNK
  2. ETHAMBUTOL [Suspect]
     Active Substance: ETHAMBUTOL HYDROCHLORIDE
     Indication: LYMPH NODE TUBERCULOSIS
     Dosage: UNK
  3. PARA-AMINOSALICYLIC ACID [Concomitant]
     Active Substance: AMINOSALICYLIC ACID
  4. STREPTOMYCIN [Concomitant]
     Active Substance: STREPTOMYCIN\STREPTOMYCIN SULFATE
  5. RIFAMPICIN [Suspect]
     Active Substance: RIFAMPIN
     Dosage: UNK
  6. RIFAMPICIN [Suspect]
     Active Substance: RIFAMPIN
     Dosage: UNK
     Route: 042
  7. PYRAZINAMIDE. [Suspect]
     Active Substance: PYRAZINAMIDE
     Indication: LYMPH NODE TUBERCULOSIS
     Dosage: UNK
  8. ISONIAZID. [Suspect]
     Active Substance: ISONIAZID
     Indication: LYMPH NODE TUBERCULOSIS
     Dosage: UNK

REACTIONS (13)
  - Diarrhoea [Recovered/Resolved]
  - Tachycardia [Recovered/Resolved]
  - Hypotension [Unknown]
  - Generalised erythema [Unknown]
  - Shock [Unknown]
  - Vomiting [Recovered/Resolved]
  - Blood pressure systolic decreased [Recovered/Resolved]
  - Anaphylactic reaction [Unknown]
  - Pruritus [Unknown]
  - Rash [Unknown]
  - Hepatitis fulminant [Recovered/Resolved]
  - Adrenal insufficiency [Unknown]
  - Acute hepatic failure [Recovered/Resolved]
